FAERS Safety Report 17804183 (Version 1)
Quarter: 2020Q2

REPORT INFORMATION
  Report Type: Spontaneous
  Country: US (occurrence: US)
  Receive Date: 20200519
  Receipt Date: 20200519
  Transmission Date: 20200714
  Serious: Yes (Other)
  Sender: FDA-Public Use
  Company Number: US-GLAXOSMITHKLINE-US2020AMR082255

PATIENT
  Age: 83 Year
  Sex: Female
  Weight: 43.99 kg

DRUGS (5)
  1. OLMESARTAN MEDOXOMIL. [Concomitant]
     Active Substance: OLMESARTAN MEDOXOMIL
     Indication: PRODUCT USED FOR UNKNOWN INDICATION
     Dosage: 5 MG
     Route: 065
  2. ZANTAC [Suspect]
     Active Substance: RANITIDINE HYDROCHLORIDE
     Indication: PRODUCT USED FOR UNKNOWN INDICATION
     Dosage: UNK
     Route: 065
     Dates: start: 2018
  3. CLOPIDOGREL [Concomitant]
     Active Substance: CLOPIDOGREL BISULFATE
     Indication: PRODUCT USED FOR UNKNOWN INDICATION
     Dosage: 75 MG
     Route: 065
  4. METOPROLOL SUCCINATE ER [Concomitant]
     Active Substance: METOPROLOL SUCCINATE
     Indication: PRODUCT USED FOR UNKNOWN INDICATION
     Dosage: 25 MG
     Route: 065
  5. TYLENOL [Concomitant]
     Active Substance: ACETAMINOPHEN
     Indication: PRODUCT USED FOR UNKNOWN INDICATION
     Dosage: 352 UNK, PRN
     Route: 065

REACTIONS (12)
  - Hepatic cyst [Unknown]
  - Alopecia [Unknown]
  - Renal failure [Not Recovered/Not Resolved]
  - Cancer surgery [Unknown]
  - Blood disorder [Unknown]
  - Weight decreased [Unknown]
  - Renal cyst [Unknown]
  - Cyst removal [Unknown]
  - Aortic stent insertion [Unknown]
  - Anal incontinence [Unknown]
  - Recalled product administered [Unknown]
  - Cyst [Unknown]

NARRATIVE: CASE EVENT DATE: 20190815
